FAERS Safety Report 5036619-7 (Version None)
Quarter: 2006Q2

REPORT INFORMATION
  Report Type: 
  Country: None (occurrence: None)
  Receive Date: 20060623
  Receipt Date: 20060602
  Transmission Date: 20061013
  Serious: Yes (Death)
  Sender: FDA-Public Use
  Company Number: TT200606003668

PATIENT
  Age: 62 Year
  Sex: Male

DRUGS (1)
  1. TADALAFIL [Suspect]

REACTIONS (2)
  - CEREBROVASCULAR ACCIDENT [None]
  - MYOCARDIAL INFARCTION [None]
